FAERS Safety Report 24642320 (Version 1)
Quarter: 2024Q4

REPORT INFORMATION
  Report Type: Spontaneous
  Country: US (occurrence: US)
  Receive Date: 20241120
  Receipt Date: 20241120
  Transmission Date: 20250115
  Serious: Yes (Other)
  Sender: PERRIGO
  Company Number: US-PERRIGO-24US010742

PATIENT
  Sex: Male

DRUGS (1)
  1. MINOXIDIL [Suspect]
     Active Substance: MINOXIDIL
     Indication: Product used for unknown indication
     Dosage: UNKNOWN, UNKNOWN
     Route: 061

REACTIONS (4)
  - Erectile dysfunction [Unknown]
  - Neuralgia [Unknown]
  - Weight increased [Unknown]
  - Application site pruritus [Unknown]
